FAERS Safety Report 21674517 (Version 1)
Quarter: 2022Q4

REPORT INFORMATION
  Report Type: Other
  Country: BR (occurrence: None)
  Receive Date: 20221202
  Receipt Date: 20221202
  Transmission Date: 20230112
  Serious: Yes (Other)
  Sender: FDA-Public Use
  Company Number: BR-Navinta LLC-000316

PATIENT
  Age: 67 Year
  Sex: Male

DRUGS (3)
  1. RIBAVIRIN [Suspect]
     Active Substance: RIBAVIRIN
     Indication: Chronic hepatitis C
  2. SOFOSBUVIR [Suspect]
     Active Substance: SOFOSBUVIR
     Indication: Chronic hepatitis C
  3. PEGYLATED INTERFERON NOS [Suspect]
     Active Substance: PEGINTERFERON ALFA-2A OR PEGINTERFERON ALFA-2B OR PEGINTERFERON BETA-1A OR PEGINTERFERON LAMBDA-1A
     Indication: Chronic hepatitis C

REACTIONS (3)
  - Hepatitis C [Unknown]
  - Virologic failure [Unknown]
  - Adverse drug reaction [Unknown]
